FAERS Safety Report 9215283 (Version 1)
Quarter: 2013Q2

REPORT INFORMATION
  Report Type: Spontaneous
  Country: GB (occurrence: GB)
  Receive Date: 20130405
  Receipt Date: 20130405
  Transmission Date: 20140414
  Serious: Yes (Hospitalization)
  Sender: FDA-Public Use
  Company Number: GB-PFIZER INC-GBWYE268729DEC05

PATIENT
  Age: 60 Year
  Sex: Male

DRUGS (3)
  1. IBUPROFEN [Suspect]
     Dosage: OVERDOSE OF 20 X 400MG TABLETS
     Route: 065
  2. GLIBENCLAMIDE [Suspect]
     Dosage: OVERDOSE OF 20 DOSES X 5MG ONCE
     Route: 065
  3. METFORMIN HYDROCHLORIDE [Suspect]
     Dosage: OVERDOSE OF 100 X 500MG TABLETS
     Route: 065

REACTIONS (13)
  - Overdose [Recovered/Resolved]
  - Lactic acidosis [Recovered/Resolved]
  - Ventricular fibrillation [Recovered/Resolved]
  - Apnoea [Recovered/Resolved]
  - Anuria [Recovered/Resolved]
  - Tachypnoea [Recovered/Resolved]
  - Agitation [Recovered/Resolved]
  - Back pain [Recovered/Resolved]
  - Polyuria [Recovered/Resolved]
  - Somnolence [Recovered/Resolved]
  - Metabolic acidosis [Recovered/Resolved]
  - Abdominal pain [Recovered/Resolved]
  - Vomiting [Recovered/Resolved]
